FAERS Safety Report 25951242 (Version 1)
Quarter: 2025Q4

REPORT INFORMATION
  Report Type: Report from Study
  Country: CA (occurrence: CA)
  Receive Date: 20251023
  Receipt Date: 20251023
  Transmission Date: 20260118
  Serious: Yes (Hospitalization, Other)
  Sender: ABBVIE
  Company Number: CA-ABBVIE-6511472

PATIENT
  Age: 54 Year
  Sex: Female

DRUGS (1)
  1. RINVOQ [Suspect]
     Active Substance: UPADACITINIB
     Indication: Crohn^s disease
     Route: 048
     Dates: start: 20240802, end: 20250908

REACTIONS (3)
  - Intestinal anastomosis [Unknown]
  - Ileostomy [Unknown]
  - Anal stenosis [Unknown]

NARRATIVE: CASE EVENT DATE: 20250915
